FAERS Safety Report 5047144-1 (Version None)
Quarter: 2006Q3

REPORT INFORMATION
  Report Type: 
  Country: None (occurrence: None)
  Receive Date: 20060703
  Receipt Date: 20060623
  Transmission Date: 20061208
  Serious: Yes (Other)
  Sender: FDA-Public Use
  Company Number: 2006080850

PATIENT
  Age: 15 Year
  Sex: Male

DRUGS (1)
  1. CETIRIZINE HCL [Suspect]
     Dosage: 10 MG (10 MG, 1 IN 1 D),
     Dates: start: 20060622

REACTIONS (1)
  - EYE SWELLING [None]
